FAERS Safety Report 6587906-2 (Version None)
Quarter: 2010Q1

REPORT INFORMATION
  Report Type: 
  Country: None (occurrence: None)
  Receive Date: 20100217
  Receipt Date: 20100217
  Transmission Date: 20100710
  Serious: Yes (Hospitalization)
  Sender: FDA-Public Use
  Company Number: None

PATIENT
  Age: 26 Year
  Sex: Male
  Weight: 90.7194 kg

DRUGS (1)
  1. SUBOXONE [Suspect]
     Indication: DEPENDENCE
     Dosage: 4MGS 1 PER DAY SL
     Route: 060
     Dates: start: 20070108, end: 20100202

REACTIONS (2)
  - GASTROINTESTINAL DISORDER [None]
  - WITHDRAWAL SYNDROME [None]
